FAERS Safety Report 24193087 (Version 1)
Quarter: 2024Q3

REPORT INFORMATION
  Report Type: Report from Study
  Country: CO (occurrence: CO)
  Receive Date: 20240809
  Receipt Date: 20240809
  Transmission Date: 20241016
  Serious: Yes (Hospitalization)
  Sender: NOVARTIS
  Company Number: CO-002147023-NVSC2024CO012776

PATIENT
  Age: 56 Year
  Sex: Male
  Weight: 74 kg

DRUGS (4)
  1. TASIGNA [Suspect]
     Active Substance: NILOTINIB
     Indication: Chronic myeloid leukaemia
     Dosage: 600 MG, QD
     Route: 048
     Dates: start: 20230323
  2. TASIGNA [Suspect]
     Active Substance: NILOTINIB
     Dosage: 150 MG, QD ONCE DAILY/ DAILY/ EVERY DAY IN THE MORNING
     Route: 048
  3. TASIGNA [Suspect]
     Active Substance: NILOTINIB
     Dosage: UNK
     Route: 048
     Dates: start: 20240719
  4. TASIGNA [Suspect]
     Active Substance: NILOTINIB
     Dosage: 150 MG, QD
     Route: 048
     Dates: start: 20240802

REACTIONS (8)
  - Malaise [Recovered/Resolved]
  - Pyrexia [Recovered/Resolved]
  - Chills [Recovered/Resolved]
  - Gastritis [Recovered/Resolved]
  - Inflammation [Recovered/Resolved]
  - Drug intolerance [Recovered/Resolved]
  - Incorrect dose administered [Unknown]
  - Off label use [Unknown]

NARRATIVE: CASE EVENT DATE: 20240719
